FAERS Safety Report 14029241 (Version 1)
Quarter: 2017Q3

REPORT INFORMATION
  Report Type: Spontaneous
  Country: US (occurrence: US)
  Receive Date: 20170930
  Receipt Date: 20170930
  Transmission Date: 20171128
  Serious: No
  Sender: FDA-Public Use
  Company Number: US-SA-2017SA085817

PATIENT
  Age: 64 Year
  Sex: Female

DRUGS (2)
  1. AUBAGIO [Suspect]
     Active Substance: TERIFLUNOMIDE
     Indication: MULTIPLE SCLEROSIS
     Route: 048
     Dates: start: 20170204
  2. AMPYRA [Suspect]
     Active Substance: DALFAMPRIDINE
     Route: 065

REACTIONS (4)
  - Condition aggravated [Not Recovered/Not Resolved]
  - Balance disorder [Unknown]
  - Dry mouth [Unknown]
  - Urinary tract infection [Not Recovered/Not Resolved]
